FAERS Safety Report 23768638 (Version 1)
Quarter: 2024Q2

REPORT INFORMATION
  Report Type: Spontaneous
  Country: GB (occurrence: GB)
  Receive Date: 20240422
  Receipt Date: 20240422
  Transmission Date: 20240716
  Serious: Yes (Other)
  Sender: FDA-Public Use
  Company Number: None

PATIENT
  Age: 73 Year
  Sex: Male
  Weight: 89 kg

DRUGS (12)
  1. AMLODIPINE [Suspect]
     Active Substance: AMLODIPINE BESYLATE
     Indication: Ill-defined disorder
     Dosage: UNK
     Route: 065
     Dates: start: 20240402
  2. AMLODIPINE [Concomitant]
     Active Substance: AMLODIPINE BESYLATE
     Indication: Ill-defined disorder
     Dosage: 1 DOSAGE FORM, QD, (TAKE ONE DAILY)
     Route: 065
     Dates: start: 20200117, end: 20240402
  3. BRINZOLAMIDE [Concomitant]
     Active Substance: BRINZOLAMIDE
     Indication: Ill-defined disorder
     Dosage: 1 DROP, TID (ONE DROP THREE TIMES DAILY IN BOTH EYES)
     Route: 065
     Dates: start: 20220503
  4. BECLOMETHASONE DIPROPIONATE [Concomitant]
     Active Substance: BECLOMETHASONE DIPROPIONATE
     Indication: Ill-defined disorder
     Dosage: BID, (INHALE TWO PUFFS TWICE DAILY)
     Route: 055
     Dates: start: 20220322, end: 20240319
  5. FLUOROURACIL [Concomitant]
     Active Substance: FLUOROURACIL
     Indication: Ill-defined disorder
     Dosage: BID, (APPLY TO LEFT CHEST AREA TWICE DAILY FOR 28 DAY...)
     Route: 061
     Dates: start: 20230921, end: 20240319
  6. POLYETHYLENE GLYCOL 3350\POTASSIUM CHLORIDE\SODIUM BICARBONATE\SODIUM [Concomitant]
     Active Substance: POLYETHYLENE GLYCOL 3350\POTASSIUM CHLORIDE\SODIUM BICARBONATE\SODIUM CHLORIDE
     Indication: Ill-defined disorder
     Dosage: QD, (MIX ONE TO THREE SACHETS WITH WATER ONCE DAILY)
     Route: 065
     Dates: start: 20240402, end: 20240414
  7. LERCANIDIPINE HYDROCHLORIDE [Concomitant]
     Active Substance: LERCANIDIPINE HYDROCHLORIDE
     Indication: Ill-defined disorder
     Dosage: 1 DOSAGE FORM, QD (TAKE ONE DAILY)
     Route: 065
     Dates: start: 20240402
  8. Luforbec [Concomitant]
     Indication: Ill-defined disorder
     Dosage: BID, (TWO PUFFS TWICE DAILY)
     Route: 065
     Dates: start: 20230912
  9. PEPPERMINT OIL [Concomitant]
     Active Substance: PEPPERMINT OIL
     Indication: Ill-defined disorder
     Dosage: 1 DOSAGE FORM, TID, (TAKE ONE 3 TIMES/DAY WHEN REQUIRED)
     Route: 065
     Dates: start: 20240125, end: 20240222
  10. CALCIUM CARBONATE\SODIUM ALGINATE\SODIUM BICARBONATE [Concomitant]
     Active Substance: CALCIUM CARBONATE\SODIUM ALGINATE\SODIUM BICARBONATE
     Indication: Ill-defined disorder
     Dosage: UNK, QID (2X5ML SPOON 4 TIMES/DAY)
     Route: 065
     Dates: start: 20190507
  11. ALBUTEROL [Concomitant]
     Active Substance: ALBUTEROL
     Indication: Ill-defined disorder
     Dosage: 2 DOSAGE FORM (INHALE 2 DOSES AS NEEDED)
     Route: 055
     Dates: start: 20230908
  12. SUMATRIPTAN [Concomitant]
     Active Substance: SUMATRIPTAN
     Indication: Ill-defined disorder
     Dosage: UNK, (50 TO 100 MG AT ONSET OF ATTACK. IF THE SYMPTOM)
     Route: 065
     Dates: start: 20190507

REACTIONS (1)
  - Hallucination [Recovered/Resolved]

NARRATIVE: CASE EVENT DATE: 20240416
